FAERS Safety Report 5966394-0 (Version None)
Quarter: 2008Q4

REPORT INFORMATION
  Report Type: 
  Country: None (occurrence: None)
  Receive Date: 20081125
  Receipt Date: 20081002
  Transmission Date: 20090506
  Serious: No
  Sender: FDA-Public Use
  Company Number: US-AMGEN-KDL309907

PATIENT
  Sex: Female

DRUGS (7)
  1. ENBREL [Suspect]
     Indication: RHEUMATOID ARTHRITIS
     Route: 058
     Dates: start: 20080910
  2. EFFEXOR XR [Concomitant]
  3. CLONAZEPAM [Concomitant]
  4. ISONIAZID [Concomitant]
  5. VITAMIN B [Concomitant]
  6. VITAMIN TAB [Concomitant]
  7. CELEBREX [Concomitant]

REACTIONS (2)
  - GINGIVAL BLEEDING [None]
  - TOOTH REPAIR [None]
